FAERS Safety Report 4919624-8 (Version None)
Quarter: 2006Q1

REPORT INFORMATION
  Report Type: 
  Country: None (occurrence: None)
  Receive Date: 20060216
  Receipt Date: 20040708
  Transmission Date: 20060701
  Serious: Yes (Life-Threatening, Hospitalization)
  Sender: FDA-Public Use
  Company Number: WAES 0312PER00009

PATIENT
  Age: 80 Year
  Sex: Male

DRUGS (7)
  1. COZAAR [Suspect]
     Indication: CARDIAC FAILURE
     Dosage: PO
     Route: 048
     Dates: start: 20030326, end: 20040401
  2. DIGOXIN [Suspect]
     Indication: CARDIAC FAILURE
     Dosage: 0.125 MG/DAILY PO
     Route: 048
     Dates: start: 20030806, end: 20040405
  3. TAB WARFARIN [Suspect]
     Indication: ATRIAL FIBRILLATION
     Dosage: 2.5 MG, DAILY PO
     Route: 048
     Dates: start: 20031116, end: 20031218
  4. SPIRONOLACTONE [Suspect]
     Indication: CARDIAC FAILURE
     Dosage: 25 MG/DAILY PO
     Route: 048
     Dates: start: 20030806
  5. FLUOXETINE HCL [Concomitant]
  6. FUROSEMIDE [Concomitant]
  7. VITAMINS [Concomitant]

REACTIONS (37)
  - ANAEMIA [None]
  - ANOREXIA [None]
  - ASTHENIA [None]
  - ATRIAL FIBRILLATION [None]
  - ATROPHY [None]
  - BLOOD GLUCOSE INCREASED [None]
  - BLOOD POTASSIUM DECREASED [None]
  - BLOOD PRESSURE DECREASED [None]
  - BRONCHIECTASIS [None]
  - CARBOHYDRATE METABOLISM DISORDER [None]
  - CARDIO-RESPIRATORY ARREST [None]
  - COUGH [None]
  - DEHYDRATION [None]
  - DEPRESSION [None]
  - DUODENITIS [None]
  - FEELING ABNORMAL [None]
  - GASTRITIS [None]
  - GASTRITIS EROSIVE [None]
  - GASTROINTESTINAL INFECTION [None]
  - GENERAL PHYSICAL HEALTH DETERIORATION [None]
  - GIARDIASIS [None]
  - INFECTION PARASITIC [None]
  - INTERNATIONAL NORMALISED RATIO INCREASED [None]
  - LUNG NEOPLASM [None]
  - MALAISE [None]
  - MALNUTRITION [None]
  - NAUSEA [None]
  - PALLOR [None]
  - RALES [None]
  - RESPIRATORY RATE INCREASED [None]
  - SEPSIS [None]
  - SPUTUM PURULENT [None]
  - THIRST [None]
  - TUBERCULOSIS [None]
  - URINARY TRACT INFECTION [None]
  - VOMITING [None]
  - WEIGHT DECREASED [None]
